FAERS Safety Report 16072098 (Version 1)
Quarter: 2019Q1

REPORT INFORMATION
  Report Type: Spontaneous
  Country: US (occurrence: US)
  Receive Date: 20190314
  Receipt Date: 20190314
  Transmission Date: 20190418
  Serious: Yes (Other)
  Sender: FDA-Public Use
  Company Number: US-BRISTOL-MYERS SQUIBB COMPANY-BMS-2019-025538

PATIENT
  Age: 60 Year
  Sex: Female

DRUGS (2)
  1. NIVOLUMAB [Suspect]
     Active Substance: NIVOLUMAB
     Indication: ENDOMETRIAL CANCER
     Route: 065
  2. IPILIMUMAB [Suspect]
     Active Substance: IPILIMUMAB
     Indication: ENDOMETRIAL CANCER
     Route: 065

REACTIONS (3)
  - Autoimmune uveitis [Not Recovered/Not Resolved]
  - Product use in unapproved indication [Unknown]
  - Iridocyclitis [Not Recovered/Not Resolved]
